FAERS Safety Report 4447080-5 (Version None)
Quarter: 2004Q3

REPORT INFORMATION
  Report Type: 
  Country: None (occurrence: None)
  Receive Date: 20040813
  Receipt Date: 20040511
  Transmission Date: 20050211
  Serious: No
  Sender: FDA-Public Use
  Company Number: S04-USA-03575-01

PATIENT
  Age: 82 Year
  Sex: Female

DRUGS (6)
  1. NAMENDA [Suspect]
     Indication: DEMENTIA ALZHEIMER'S TYPE
     Dosage: 5 MG QD PO
     Route: 048
     Dates: start: 20040507
  2. LIPITOR [Concomitant]
  3. LOPRESSOR [Concomitant]
  4. PREVACID [Concomitant]
  5. CELEBREX [Concomitant]
  6. INSULIN (NOS) [Concomitant]

REACTIONS (1)
  - CONFUSIONAL STATE [None]
